FAERS Safety Report 23422832 (Version 1)
Quarter: 2024Q1

REPORT INFORMATION
  Report Type: Spontaneous
  Country: GB (occurrence: GB)
  Receive Date: 20240119
  Receipt Date: 20240119
  Transmission Date: 20240410
  Serious: Yes (Disabling)
  Sender: FDA-Public Use
  Company Number: None

PATIENT

DRUGS (1)
  1. OLANZAPINE [Suspect]
     Active Substance: OLANZAPINE
     Route: 065

REACTIONS (3)
  - Loss of libido [Not Recovered/Not Resolved]
  - Somnolence [Not Recovered/Not Resolved]
  - Flat affect [Not Recovered/Not Resolved]
